FAERS Safety Report 7925242 (Version 2)
Quarter: 2024Q4

REPORT INFORMATION
  Report Type: Spontaneous
  Country: ES (occurrence: ES)
  Receive Date: 20110502
  Receipt Date: 20241010
  Transmission Date: 20250115
  Serious: Yes (Other)
  Sender: PFIZER
  Company Number: ES-PFIZER INC-2011089396

PATIENT
  Age: 33 Year
  Sex: Female

DRUGS (6)
  1. ANIDULAFUNGIN [Suspect]
     Active Substance: ANIDULAFUNGIN
     Indication: Abdominal sepsis
     Dosage: 100 MG, 1X/DAY
     Route: 042
     Dates: start: 20101112, end: 20101121
  2. CIPROFLOXACIN [Suspect]
     Active Substance: CIPROFLOXACIN
     Indication: Abdominal sepsis
     Dosage: 0.4 G, 3X/DAY (EVERY 8-12 HOURS)
     Route: 042
     Dates: start: 20101112, end: 20101121
  3. MEROPENEM [Suspect]
     Active Substance: MEROPENEM
     Indication: Abdominal sepsis
     Dosage: 1 G, 3X/DAY (EVEYR 8-12 HOURS)
     Route: 042
     Dates: start: 20101106, end: 20101121
  4. DAPTOMYCIN [Concomitant]
     Active Substance: DAPTOMYCIN
     Indication: Abdominal sepsis
     Dosage: 250 MG, 1X/DAY
     Route: 042
     Dates: start: 20101112, end: 20101117
  5. PERFALGAN [Concomitant]
     Active Substance: ACETAMINOPHEN
     Indication: Pain
     Dosage: 1 G, 4X/DAY
     Route: 042
     Dates: start: 20101103
  6. LINEZOLID [Concomitant]
     Active Substance: LINEZOLID
     Indication: Abdominal sepsis
     Dosage: 0.6 G, 2X/DAY
     Route: 042
     Dates: start: 20101114, end: 20101117

REACTIONS (1)
  - Hepatitis cholestatic [Recovered/Resolved]

NARRATIVE: CASE EVENT DATE: 20101116
